FAERS Safety Report 7614395-9 (Version None)
Quarter: 2011Q3

REPORT INFORMATION
  Report Type: 
  Country: None (occurrence: None)
  Receive Date: 20110708
  Receipt Date: 20110627
  Transmission Date: 20111222
  Serious: Yes (Death)
  Sender: FDA-Public Use
  Company Number: OPER20110147

PATIENT
  Age: 25 Year
  Sex: Male
  Weight: 99.7913 kg

DRUGS (4)
  1. OPANA ER [Suspect]
     Indication: DRUG ABUSE
  2. ALPRAZOLAM [Suspect]
     Indication: DRUG ABUSE
  3. CLONAZEPAM [Suspect]
     Indication: DRUG ABUSE
  4. THC (CANNABIS SATIVA) (INHALANT) [Suspect]
     Indication: DRUG ABUSE
     Dosage: INHALATION

REACTIONS (11)
  - DRUG ABUSE [None]
  - RENAL TUBULAR DISORDER [None]
  - UNRESPONSIVE TO STIMULI [None]
  - PULMONARY CONGESTION [None]
  - TOXICITY TO VARIOUS AGENTS [None]
  - HEPATIC CONGESTION [None]
  - HEPATIC STEATOSIS [None]
  - CARDIOMEGALY [None]
  - LEFT VENTRICULAR HYPERTROPHY [None]
  - CELL DEATH [None]
  - MYOCARDIAL FIBROSIS [None]
